FAERS Safety Report 7065856-5 (Version None)
Quarter: 2010Q4

REPORT INFORMATION
  Report Type: 
  Country: None (occurrence: None)
  Receive Date: 20101027
  Receipt Date: 20101004
  Transmission Date: 20110411
  Serious: Yes (Hospitalization, Disabling)
  Sender: FDA-Public Use
  Company Number: BR-PFIZER INC-2010124590

PATIENT
  Age: 29 Year
  Sex: Male
  Weight: 94 kg

DRUGS (1)
  1. CELEBRA [Suspect]
     Indication: LIMB INJURY
     Dosage: 200 MG, 2X/DAY
     Route: 048
     Dates: start: 20100928, end: 20100928

REACTIONS (3)
  - ERYTHEMA [None]
  - HYPERSENSITIVITY [None]
  - SKIN NODULE [None]
